FAERS Safety Report 15926303 (Version 2)
Quarter: 2019Q1

REPORT INFORMATION
  Report Type: Spontaneous
  Country: US (occurrence: US)
  Receive Date: 20190205
  Receipt Date: 20190219
  Transmission Date: 20190417
  Serious: No
  Sender: FDA-Public Use
  Company Number: US-ALLERGAN-1830745US

PATIENT
  Age: 57 Year
  Sex: Female

DRUGS (1)
  1. BOTOX [Suspect]
     Active Substance: ONABOTULINUMTOXINA
     Indication: MIGRAINE
     Dosage: UNK UNK, SINGLE
     Route: 030
     Dates: start: 20180605, end: 20180605

REACTIONS (17)
  - Head discomfort [Recovering/Resolving]
  - Intraocular pressure increased [Recovering/Resolving]
  - Dry mouth [Recovering/Resolving]
  - Vertigo [Recovering/Resolving]
  - Vision blurred [Recovering/Resolving]
  - Hypoaesthesia [Recovering/Resolving]
  - Injection site pain [Recovering/Resolving]
  - Musculoskeletal pain [Recovering/Resolving]
  - Paraesthesia [Recovering/Resolving]
  - Pain in jaw [Recovering/Resolving]
  - Reduced facial expression [Recovering/Resolving]
  - Hypoaesthesia oral [Recovering/Resolving]
  - Balance disorder [Recovering/Resolving]
  - Pharyngeal hypoaesthesia [Recovering/Resolving]
  - Tinnitus [Recovering/Resolving]
  - Dysphagia [Recovering/Resolving]
  - Dizziness [Recovering/Resolving]

NARRATIVE: CASE EVENT DATE: 20180607
